FAERS Safety Report 14587256 (Version 1)
Quarter: 2018Q1

REPORT INFORMATION
  Report Type: Spontaneous
  Country: US (occurrence: US)
  Receive Date: 20180228
  Receipt Date: 20180228
  Transmission Date: 20180509
  Serious: Yes (Hospitalization)
  Sender: FDA-Public Use
  Company Number: None

PATIENT
  Age: 69 Year
  Sex: Female
  Weight: 86.85 kg

DRUGS (1)
  1. ALENDRONATE [Suspect]
     Active Substance: ALENDRONATE SODIUM
     Indication: BONE DISORDER
     Dosage: ?          QUANTITY:1 TABLET(S);OTHER FREQUENCY:1 A WEEK;?
     Route: 048

REACTIONS (5)
  - Emotional disorder [None]
  - Crying [None]
  - Abdominal pain [None]
  - Faeces pale [None]
  - Drug hypersensitivity [None]

NARRATIVE: CASE EVENT DATE: 20171116
